FAERS Safety Report 7058758-1 (Version None)
Quarter: 2010Q4

REPORT INFORMATION
  Report Type: 
  Country: None (occurrence: None)
  Receive Date: 20101022
  Receipt Date: 20101011
  Transmission Date: 20110411
  Serious: Yes (Hospitalization)
  Sender: FDA-Public Use
  Company Number: NL-MYLANLABS-2010S1018973

PATIENT
  Age: 28 Year
  Sex: Male

DRUGS (4)
  1. METOPROLOL [Suspect]
     Indication: SINUS TACHYCARDIA
     Route: 065
  2. AMITRIPTYLINE HCL [Suspect]
     Indication: NEURALGIA
     Route: 065
  3. FLUCLOXACILLIN [Concomitant]
     Indication: STAPHYLOCOCCUS TEST POSITIVE
     Route: 065
  4. VANCOMYCIN [Concomitant]
     Indication: STAPHYLOCOCCAL INFECTION
     Route: 065

REACTIONS (4)
  - DRUG RASH WITH EOSINOPHILIA AND SYSTEMIC SYMPTOMS [None]
  - HEPATITIS [None]
  - RENAL FAILURE [None]
  - SHOCK [None]
